FAERS Safety Report 24167043 (Version 2)
Quarter: 2024Q3

REPORT INFORMATION
  Report Type: Report from Study
  Country: PH (occurrence: None)
  Receive Date: 20240802
  Receipt Date: 20240830
  Transmission Date: 20241017
  Serious: Yes (Death, Disabling, Other)
  Sender: ASTRAZENECA
  Company Number: 2024A172212

PATIENT
  Age: 86 Year
  Sex: Female
  Weight: 31.8 kg

DRUGS (9)
  1. TAGRISSO [Suspect]
     Active Substance: OSIMERTINIB
     Indication: Lung carcinoma cell type unspecified stage IV
     Route: 048
     Dates: start: 20231204, end: 20231218
  2. ERYTHROPOIETIN [Concomitant]
     Active Substance: ERYTHROPOIETIN
     Indication: Routine health maintenance
     Dates: end: 20231218
  3. LANSOPRAZOLE [Concomitant]
     Active Substance: LANSOPRAZOLE
     Indication: Routine health maintenance
     Route: 048
     Dates: end: 20231218
  4. VITAMIN B [Concomitant]
     Active Substance: VITAMIN B
     Indication: Routine health maintenance
     Route: 048
     Dates: end: 20231218
  5. ALBUTEROL [Concomitant]
     Active Substance: ALBUTEROL
     Indication: Routine health maintenance
     Route: 048
     Dates: end: 20231218
  6. TRAMADOL [Concomitant]
     Active Substance: TRAMADOL\TRAMADOL HYDROCHLORIDE
     Indication: Routine health maintenance
     Route: 048
     Dates: end: 20231218
  7. FOLIC ACID [Concomitant]
     Active Substance: FOLIC ACID
     Indication: Routine health maintenance
     Route: 048
     Dates: end: 20231218
  8. LOSARTAN [Concomitant]
     Active Substance: LOSARTAN\LOSARTAN POTASSIUM
     Indication: Routine health maintenance
     Route: 048
     Dates: end: 20231218
  9. DEXTROSE [Concomitant]
     Active Substance: DEXTROSE\DEXTROSE MONOHYDRATE
     Route: 042

REACTIONS (5)
  - Death [Fatal]
  - Diarrhoea [Unknown]
  - Vomiting [Unknown]
  - Asthenia [Unknown]
  - Decreased appetite [Unknown]

NARRATIVE: CASE EVENT DATE: 20231217
